FAERS Safety Report 14529883 (Version 1)
Quarter: 2018Q1

REPORT INFORMATION
  Report Type: Spontaneous
  Country: US (occurrence: US)
  Receive Date: 20180214
  Receipt Date: 20180214
  Transmission Date: 20180509
  Serious: No
  Sender: FDA-Public Use
  Company Number: US-009507513-1801USA014225

PATIENT
  Age: 75 Year
  Sex: Female

DRUGS (10)
  1. ZOCOR [Concomitant]
     Active Substance: SIMVASTATIN
     Route: 048
  2. METFORMIN [Concomitant]
     Active Substance: METFORMIN HYDROCHLORIDE
  3. GLIPERIDE [Concomitant]
     Active Substance: GLIMEPIRIDE
  4. ASPIRIN. [Concomitant]
     Active Substance: ASPIRIN
     Route: 048
  5. CINNAMON. [Concomitant]
     Active Substance: CINNAMON
  6. BELSOMRA [Suspect]
     Active Substance: SUVOREXANT
     Indication: INSOMNIA
     Dosage: 1 TABLET ONCE A DAY AT BEDTIME
     Route: 048
     Dates: start: 201711
  7. TURMERIC [Concomitant]
     Active Substance: HERBALS\TURMERIC
  8. COCONUT. [Concomitant]
     Active Substance: COCONUT
  9. PRINIVIL [Concomitant]
     Active Substance: LISINOPRIL
     Route: 048
  10. VITAMIN D [Concomitant]
     Active Substance: CHOLECALCIFEROL

REACTIONS (3)
  - Drug ineffective [Not Recovered/Not Resolved]
  - Drug dose omission [Unknown]
  - Inappropriate schedule of drug administration [Unknown]
